FAERS Safety Report 5400266-5 (Version None)
Quarter: 2007Q3

REPORT INFORMATION
  Report Type: 
  Country: None (occurrence: None)
  Receive Date: 20070730
  Receipt Date: 20070722
  Transmission Date: 20080115
  Serious: Yes (Hospitalization)
  Sender: FDA-Public Use
  Company Number: US-AMGEN-US235436

PATIENT
  Sex: Female

DRUGS (3)
  1. ENBREL [Suspect]
     Indication: RHEUMATOID ARTHRITIS
     Route: 058
     Dates: start: 20040130
  2. METHOTREXATE SODIUM [Concomitant]
     Route: 065
  3. HUMIRA [Concomitant]
     Route: 065

REACTIONS (2)
  - COMA [None]
  - RESPIRATORY FAILURE [None]
